FAERS Safety Report 8326323 (Version 3)
Quarter: 2013Q4

REPORT INFORMATION
  Report Type: Spontaneous
  Country: US (occurrence: US)
  Receive Date: 20120109
  Receipt Date: 20131206
  Transmission Date: 20140711
  Serious: Yes (Other)
  Sender: FDA-Public Use
  Company Number: US-PFIZER INC-2012005012

PATIENT
  Age: 73 Year
  Sex: Female
  Weight: 70.9 kg

DRUGS (10)
  1. LIPITOR [Suspect]
     Indication: CAROTID ARTERY OCCLUSION
     Dosage: 10 MG, DAILY (20MG TABLET INTO HALF)
     Route: 048
  2. LIPITOR [Suspect]
     Indication: BLOOD CHOLESTEROL INCREASED
     Dosage: 10 MG, 1X/DAY
     Route: 048
  3. LIPITOR [Suspect]
     Indication: ARTERIAL DISORDER
  4. LISINOPRIL [Concomitant]
     Indication: BLOOD PRESSURE ABNORMAL
     Dosage: 40 MG, DAILY
  5. LORAZEPAM [Concomitant]
     Dosage: 5 MG, 3X/DAY
  6. HYDROCHLOROTHIAZIDE [Concomitant]
     Indication: BLOOD PRESSURE ABNORMAL
     Dosage: 25 MG, DAILY
  7. ACETYLSALICYLIC ACID [Concomitant]
     Indication: CARDIOVASCULAR EVENT PROPHYLAXIS
     Dosage: 81 MG, DAILY
  8. AMLODIPINE [Concomitant]
     Dosage: 5 MG, DAILY
  9. BILBERRY [Concomitant]
     Indication: EYE DISORDER
     Dosage: UNK
  10. PREMARIN VAGINAL CREAM [Concomitant]
     Dosage: UNK

REACTIONS (4)
  - Cardiac disorder [Unknown]
  - Loss of consciousness [Unknown]
  - Weight increased [Unknown]
  - Weight increased [Unknown]
